FAERS Safety Report 10783873 (Version 1)
Quarter: 2015Q1

REPORT INFORMATION
  Report Type: Other
  Country: US (occurrence: US)
  Receive Date: 20150210
  Receipt Date: 20150210
  Transmission Date: 20150721
  Serious: Yes (Death)
  Sender: FDA-Public Use
  Company Number: US-FRI-1000074333

PATIENT
  Age: 55 Year
  Sex: Male

DRUGS (4)
  1. FENTANYL. [Suspect]
     Active Substance: FENTANYL
  2. DILTIAZEM [Suspect]
     Active Substance: DILTIAZEM
  3. CITALOPRAM [Suspect]
     Active Substance: CITALOPRAM HYDROBROMIDE
  4. METHADONE [Suspect]
     Active Substance: METHADONE HYDROCHLORIDE

REACTIONS (1)
  - Drug abuse [Fatal]
